FAERS Safety Report 20196216 (Version 1)
Quarter: 2021Q4

REPORT INFORMATION
  Report Type: Spontaneous
  Country: US (occurrence: US)
  Receive Date: 20211216
  Receipt Date: 20211216
  Transmission Date: 20220304
  Serious: No
  Sender: FDA-Public Use
  Company Number: US-SA-2021SA383807

PATIENT
  Age: 29 Year
  Sex: Male

DRUGS (4)
  1. CLOBAZAM [Interacting]
     Active Substance: CLOBAZAM
     Indication: Epilepsy
     Route: 065
  2. LITHIUM CARBONATE [Interacting]
     Active Substance: LITHIUM CARBONATE
     Indication: Autism spectrum disorder
     Dosage: 450 MG/KG, BID (EXTENDED RELEASE)
     Route: 065
  3. LITHIUM CARBONATE [Interacting]
     Active Substance: LITHIUM CARBONATE
     Dosage: 6.3 MG/KG
     Route: 065
  4. LACOSAMIDE [Interacting]
     Active Substance: LACOSAMIDE
     Indication: Epilepsy
     Route: 065

REACTIONS (4)
  - Behaviour disorder [Unknown]
  - Drug interaction [Unknown]
  - Off label use [Unknown]
  - Drug effective for unapproved indication [Unknown]
